FAERS Safety Report 6141852-7 (Version None)
Quarter: 2009Q2

REPORT INFORMATION
  Report Type: 
  Country: None (occurrence: None)
  Receive Date: 20090402
  Receipt Date: 20090325
  Transmission Date: 20091009
  Serious: Yes (Hospitalization)
  Sender: FDA-Public Use
  Company Number: KZ-JNJFOC-20090205091

PATIENT
  Sex: Male
  Weight: 92 kg

DRUGS (5)
  1. PALIPERIDONE PALMITATE [Suspect]
     Route: 048
  2. PALIPERIDONE PALMITATE [Suspect]
     Indication: PARANOIA
     Route: 048
  3. PALIPERIDONE PALMITATE [Suspect]
     Indication: SCHIZOPHRENIA
     Route: 048
  4. CLOZAPINE [Suspect]
     Indication: SEDATION
     Route: 048
  5. CLOZAPINE [Suspect]
     Indication: SCHIZOPHRENIA
     Route: 048

REACTIONS (1)
  - CATATONIA [None]
